FAERS Safety Report 22143601 (Version 1)
Quarter: 2023Q1

REPORT INFORMATION
  Report Type: Spontaneous
  Country: US (occurrence: US)
  Receive Date: 20230327
  Receipt Date: 20230327
  Transmission Date: 20230417
  Serious: No
  Sender: FDA-Public Use
  Company Number: US-GALDERMA-US2023003730

PATIENT

DRUGS (16)
  1. PROACTIV MD ADAPALENE ACNE TREATMENT [Suspect]
     Active Substance: ADAPALENE
     Indication: Acne
     Dosage: 1 DOSAGE FORM, QD, AS INSTRUCTED APPLIED ON FACE
     Route: 061
     Dates: start: 202212
  2. PROACTIV MD ADAPALENE ACNE TREATMENT [Suspect]
     Active Substance: ADAPALENE
     Indication: Scar
  3. PROACTIV CLEAR SKIN SPF 30 [Concomitant]
     Active Substance: AVOBENZONE\OCTISALATE\OCTOCRYLENE
     Indication: Acne
     Dosage: 1 DOSAGE FORM, BID, AS INSTRUCTED APPLIED ON FACE
     Route: 061
     Dates: start: 202212
  4. PROACTIV CLEAR SKIN SPF 30 [Concomitant]
     Active Substance: AVOBENZONE\OCTISALATE\OCTOCRYLENE
     Indication: Scar
  5. Proactiv MD Ultra Hydrating Moisturizer [Concomitant]
     Indication: Acne
     Dosage: 1 DOSAGE FORM, BID, AS INSTRUCTED APPLIED ON FACE
     Route: 061
     Dates: start: 202212
  6. Proactiv MD Ultra Hydrating Moisturizer [Concomitant]
     Indication: Scar
  7. Proactiv MD Ultra Gentle Cleanser [Concomitant]
     Indication: Acne
     Dosage: 1 DOSAGE FORM, BID, AS INSTRUCTED APPLIED ON FACE
     Route: 061
     Dates: start: 202212
  8. Proactiv MD Ultra Gentle Cleanser [Concomitant]
     Indication: Scar
  9. PROACTIV ACNE BODY WASH [Concomitant]
     Active Substance: SALICYLIC ACID
     Indication: Acne
     Dosage: 1 DOSAGE FORM, BID, AS INSTRUCTED APPLIED ON FACE
     Route: 061
     Dates: start: 202212
  10. PROACTIV ACNE BODY WASH [Concomitant]
     Active Substance: SALICYLIC ACID
     Indication: Scar
  11. PROACTIV BLACKHEAD DISSOLVING [Concomitant]
     Active Substance: SALICYLIC ACID
     Indication: Acne
     Dosage: 1 DOSAGE FORM, BID,AS INSTRUCTED APPLIED ON FACE
     Route: 061
     Dates: start: 202212
  12. PROACTIV BLACKHEAD DISSOLVING [Concomitant]
     Active Substance: SALICYLIC ACID
     Indication: Scar
  13. Proactiv Post Acne Dark Mark Relief [Concomitant]
     Indication: Acne
     Dosage: 1 DOSAGE FORM, BID, AS INSTRUCTED APPLIED ON FACE
     Route: 061
     Dates: start: 202212
  14. Proactiv Post Acne Dark Mark Relief [Concomitant]
     Indication: Scar
  15. Proactiv Post Acne Scar Gel [Concomitant]
     Indication: Acne
     Dosage: 1 DOSAGE FORM, BID, AS INSTRUCTED APPLIED ON FACE
     Route: 061
     Dates: start: 202212
  16. Proactiv Post Acne Scar Gel [Concomitant]
     Indication: Scar

REACTIONS (1)
  - Drug ineffective [Unknown]
